FAERS Safety Report 13051615 (Version 1)
Quarter: 2016Q4

REPORT INFORMATION
  Report Type: Spontaneous
  Country: RO (occurrence: RO)
  Receive Date: 20161221
  Receipt Date: 20161221
  Transmission Date: 20170207
  Serious: Yes (Hospitalization, Other)
  Sender: FDA-Public Use
  Company Number: RO-PFIZER INC-2016576015

PATIENT
  Age: 8 Decade
  Sex: Male

DRUGS (2)
  1. SORTIS [Suspect]
     Active Substance: ATORVASTATIN
     Indication: HYPERCHOLESTEROLAEMIA
     Dosage: 20 MG, 1X/DAY
     Route: 048
  2. SORTIS [Suspect]
     Active Substance: ATORVASTATIN
     Dosage: 80 MG, 1X/DAY
     Route: 048

REACTIONS (6)
  - Myocardial infarction [Recovered/Resolved]
  - Low density lipoprotein increased [Unknown]
  - Transaminases increased [Unknown]
  - Rhabdomyolysis [Recovering/Resolving]
  - Blood glucose increased [Recovering/Resolving]
  - Blood creatine phosphokinase increased [Unknown]
